FAERS Safety Report 6749311-5 (Version None)
Quarter: 2010Q2

REPORT INFORMATION
  Report Type: 
  Country: None (occurrence: None)
  Receive Date: 20100601
  Receipt Date: 20080218
  Transmission Date: 20101027
  Serious: Yes (Death)
  Sender: FDA-Public Use
  Company Number: FR-ROCHE-430221

PATIENT
  Sex: Male

DRUGS (9)
  1. APRANAX [Suspect]
     Dosage: DRUG ALSO REPORTED AS NAPROXENE BOX CONCENTRATION 550MG
     Route: 048
     Dates: start: 20050418, end: 20050418
  2. APRANAX [Suspect]
     Dosage: DRUG ALSO REPORTED AS NAPROXENE BOX CONCENTRATION 550 MG
     Route: 048
     Dates: start: 20050418
  3. PARACETAMOL [Suspect]
     Route: 048
  4. DEXTROPROPOXIFEN [Concomitant]
     Route: 048
  5. ZOLPIDEM [Concomitant]
     Route: 048
  6. ETHANOL [Concomitant]
     Route: 048
  7. BROMAZEPAM [Concomitant]
     Route: 048
  8. TETRAZEPAM [Concomitant]
  9. EFFEXOR [Concomitant]
     Route: 048
     Dates: start: 20050418, end: 20050418

REACTIONS (2)
  - DRUG ABUSE [None]
  - DRUG TOXICITY [None]
